FAERS Safety Report 15241330 (Version 1)
Quarter: 2018Q3

REPORT INFORMATION
  Report Type: Spontaneous
  Country: US (occurrence: US)
  Receive Date: 20180711
  Receipt Date: 20180711
  Transmission Date: 20181010
  Serious: No
  Sender: FDA-Public Use
  Company Number: None

PATIENT
  Age: 29 Year
  Sex: Female

DRUGS (1)
  1. ENBREL [Suspect]
     Active Substance: ETANERCEPT
     Dates: start: 20170804, end: 20180711

REACTIONS (6)
  - Peripheral swelling [None]
  - Back pain [None]
  - Joint swelling [None]
  - Arthralgia [None]
  - Drug dose omission [None]
  - Pain in extremity [None]

NARRATIVE: CASE EVENT DATE: 20180611
